FAERS Safety Report 12986621 (Version 1)
Quarter: 2016Q4

REPORT INFORMATION
  Report Type: Spontaneous
  Country: US (occurrence: US)
  Receive Date: 20161129
  Receipt Date: 20161129
  Transmission Date: 20170207
  Serious: Yes (Other)
  Sender: FDA-Public Use
  Company Number: None

PATIENT
  Age: 27 Year
  Sex: Female
  Weight: 47.25 kg

DRUGS (2)
  1. CENTRUM MULTIVITAMIN [Concomitant]
  2. TERBINAFINE HCL [Suspect]
     Active Substance: TERBINAFINE HYDROCHLORIDE
     Indication: ONYCHOMYCOSIS
     Dosage: ?          QUANTITY:1 TABLET(S);?
     Route: 048
     Dates: start: 20161006, end: 20161129

REACTIONS (3)
  - Dysgeusia [None]
  - Menstrual disorder [None]
  - Ageusia [None]

NARRATIVE: CASE EVENT DATE: 20161115
